FAERS Safety Report 8862815 (Version 1)
Quarter: 2012Q4

REPORT INFORMATION
  Report Type: 
  Country: US (occurrence: US)
  Receive Date: 20121026
  Receipt Date: 20121026
  Transmission Date: 20130627
  Serious: No
  Sender: FDA-Public Use
  Company Number: US-ASTRAZENECA-2011SE60293

PATIENT
  Age: 72 Year
  Sex: Female

DRUGS (3)
  1. CRESTOR [Suspect]
     Route: 048
  2. CRESTOR [Suspect]
     Route: 048
  3. CITROMAX [Concomitant]

REACTIONS (5)
  - Costochondritis [Unknown]
  - Abasia [Unknown]
  - Myalgia [Unknown]
  - Pain in extremity [Unknown]
  - Off label use [Unknown]
